FAERS Safety Report 4749762-4 (Version None)
Quarter: 2005Q3

REPORT INFORMATION
  Report Type: 
  Country: None (occurrence: None)
  Receive Date: 20050822
  Receipt Date: 20050810
  Transmission Date: 20060218
  Serious: Yes (Hospitalization)
  Sender: FDA-Public Use
  Company Number: US-BRISTOL-MYERS SQUIBB COMPANY-13070859

PATIENT
  Age: 65 Year
  Sex: Male

DRUGS (2)
  1. CISPLATIN [Suspect]
     Indication: PHARYNGEAL CANCER METASTATIC
     Dosage: TOTAL DOSE:  1566 MG
     Route: 042
     Dates: start: 20001102, end: 20010711
  2. CETUXIMAB [Suspect]
     Indication: PHARYNGEAL CANCER METASTATIC
     Route: 042
     Dates: start: 20001102, end: 20001102

REACTIONS (1)
  - ILEUS [None]
